FAERS Safety Report 21860475 (Version 10)
Quarter: 2023Q1

REPORT INFORMATION
  Report Type: Spontaneous
  Country: US (occurrence: US)
  Receive Date: 20230113
  Receipt Date: 20230315
  Transmission Date: 20230418
  Serious: No
  Sender: FDA-Public Use
  Company Number: US-UNITED THERAPEUTICS-UNT-2023-000164

PATIENT
  Sex: Male
  Weight: 74.376 kg

DRUGS (9)
  1. TYVASO DPI [Suspect]
     Active Substance: TREPROSTINIL
     Indication: Pulmonary arterial hypertension
     Dosage: 16 ?G, QID
  2. TYVASO DPI [Suspect]
     Active Substance: TREPROSTINIL
     Dosage: 48 ?G, QID
  3. TYVASO DPI [Suspect]
     Active Substance: TREPROSTINIL
     Dosage: 64 ?G, QID
  4. TYVASO DPI [Suspect]
     Active Substance: TREPROSTINIL
     Dosage: 48 ?G
  5. TYVASO DPI [Suspect]
     Active Substance: TREPROSTINIL
     Dosage: UNK
     Dates: start: 20221208
  6. TYVASO DPI [Suspect]
     Active Substance: TREPROSTINIL
     Indication: Pulmonary arterial hypertension
     Dosage: UNK
  7. TYVASO DPI [Suspect]
     Active Substance: TREPROSTINIL
     Indication: Pulmonary arterial hypertension
     Dosage: UNK
  8. TYVASO DPI [Suspect]
     Active Substance: TREPROSTINIL
     Indication: Pulmonary arterial hypertension
     Dosage: UNK
  9. TYVASO DPI [Suspect]
     Active Substance: TREPROSTINIL
     Dosage: UNK

REACTIONS (26)
  - Cough [Not Recovered/Not Resolved]
  - Flushing [Unknown]
  - Productive cough [Not Recovered/Not Resolved]
  - Throat irritation [Unknown]
  - Muscle spasms [Unknown]
  - Headache [Unknown]
  - Oropharyngeal pain [Unknown]
  - Dyspnoea [Not Recovered/Not Resolved]
  - Pollakiuria [Unknown]
  - Joint swelling [Unknown]
  - Erythema [Unknown]
  - Chills [Unknown]
  - Oxygen saturation decreased [Not Recovered/Not Resolved]
  - Pulmonary function test decreased [Not Recovered/Not Resolved]
  - Nasal congestion [Unknown]
  - Walking distance test abnormal [Unknown]
  - Dry mouth [Unknown]
  - Weight decreased [Unknown]
  - Brain natriuretic peptide increased [Unknown]
  - Gastrooesophageal reflux disease [Unknown]
  - Heart rate increased [Unknown]
  - Influenza [Unknown]
  - Dizziness [Unknown]
  - Dyspnoea exertional [Unknown]
  - Haemoptysis [Unknown]
  - Therapy non-responder [Unknown]
